FAERS Safety Report 6123340-7 (Version None)
Quarter: 2009Q1

REPORT INFORMATION
  Report Type: 
  Country: None (occurrence: None)
  Receive Date: 20090318
  Receipt Date: 20090313
  Transmission Date: 20090719
  Serious: Yes (Hospitalization)
  Sender: FDA-Public Use
  Company Number: US-ELI_LILLY_AND_COMPANY-US200903003726

PATIENT
  Sex: Female
  Weight: 115.19 kg

DRUGS (19)
  1. BYETTA [Suspect]
     Indication: TYPE 2 DIABETES MELLITUS
     Dosage: 5 UG, 2/D
     Route: 058
     Dates: start: 20070101, end: 20070201
  2. BYETTA [Suspect]
     Dosage: 10 UG, 2/D
     Route: 058
     Dates: start: 20070201, end: 20080701
  3. LASIX [Concomitant]
     Dosage: 40 MG, DAILY (1/D)
     Route: 048
  4. POTASSIUM CHLORIDE [Concomitant]
     Dosage: 20 MEQ, DAILY (1/D)
     Route: 048
  5. ZETIA [Concomitant]
     Dosage: 10 MG, DAILY (1/D)
     Route: 048
  6. SINGULAIR [Concomitant]
     Dosage: 10 MG, DAILY (1/D)
     Route: 048
  7. ASPIRIN [Concomitant]
     Dosage: 325 MG, DAILY (1/D)
  8. NEXIUM [Concomitant]
     Dosage: 40 MG, DAILY (1/D)
     Route: 048
  9. B COMPLEX                          /00212701/ [Concomitant]
     Dosage: UNK, DAILY (1/D)
     Route: 048
  10. FISH OIL [Concomitant]
     Dosage: 1000 MG, 2/D
     Route: 048
  11. DIOVAN [Concomitant]
     Dosage: 320 MG, DAILY (1/D)
     Route: 048
     Dates: end: 20080701
  12. DIOVAN [Concomitant]
     Dosage: 80 MG, DAILY (1/D)
     Route: 048
     Dates: start: 20080701
  13. INSULATARD NPH HUMAN [Concomitant]
     Dosage: 20 U, EACH MORNING
     Route: 058
     Dates: start: 20080101
  14. INSULATARD NPH HUMAN [Concomitant]
     Dosage: 15 U, EACH EVENING
     Route: 058
  15. INSULIN [Concomitant]
     Dosage: UNK, OTHER
  16. JANUMET [Concomitant]
     Dosage: UNK, UNKNOWN
     Dates: start: 20080101
  17. AVANDIA [Concomitant]
     Dosage: UNK, UNKNOWN
  18. GLUCOTROL [Concomitant]
     Dosage: UNK, UNKNOWN
     Dates: start: 20080101
  19. LOVENOX [Concomitant]
     Dosage: UNK, UNKNOWN

REACTIONS (2)
  - CORONARY ARTERY OCCLUSION [None]
  - MYOCARDIAL INFARCTION [None]
